FAERS Safety Report 8360491-0 (Version None)
Quarter: 2012Q1

REPORT INFORMATION
  Report Type: 
  Country: None (occurrence: None)
  Receive Date: 20120315
  Receipt Date: 20110328
  Transmission Date: 20120608
  Serious: Yes (Other)
  Sender: FDA-Public Use
  Company Number: PHHY2010US90120

PATIENT
  Age: 42 Year
  Sex: Female

DRUGS (11)
  1. GILENYA [Suspect]
     Indication: RELAPSING-REMITTING MULTIPLE SCLEROSIS
     Dosage: 0.5 MG, QD, ORAL
     Route: 048
     Dates: start: 20101220, end: 20110311
  2. MILNACIPRAN HYDROCHLORIDE (MILNACIPRAN HYDROCHLORIDE) [Concomitant]
  3. EFFEXOR [Concomitant]
  4. ADDERALL 10 [Concomitant]
  5. DEXEDRIN (DEXAMFETAMINE) [Concomitant]
  6. DIAZEPAM [Concomitant]
  7. VALIUM [Concomitant]
  8. BACLOFEN [Concomitant]
  9. CLONAZEPAM [Concomitant]
  10. OXYCODONE HCL [Concomitant]
  11. NORTRIPTYLINE HCL [Concomitant]

REACTIONS (8)
  - RASH GENERALISED [None]
  - RED BLOOD CELL COUNT DECREASED [None]
  - NEUTROPHIL COUNT DECREASED [None]
  - BLOOD CHLORIDE DECREASED [None]
  - LYMPHOCYTE COUNT DECREASED [None]
  - WHITE BLOOD CELL COUNT DECREASED [None]
  - BLOOD SODIUM DECREASED [None]
  - MONOCYTE COUNT INCREASED [None]
